FAERS Safety Report 6238565-X (Version None)
Quarter: 2009Q2

REPORT INFORMATION
  Report Type: 
  Country: None (occurrence: None)
  Receive Date: 20090622
  Receipt Date: 20090612
  Transmission Date: 20091009
  Serious: No
  Sender: FDA-Public Use
  Company Number: US-BAYER-200923558NA

PATIENT
  Age: 23 Year
  Sex: Female
  Weight: 91 kg

DRUGS (2)
  1. YAZ [Suspect]
     Indication: MENSTRUATION IRREGULAR
     Dosage: 1 TAB/DAY
     Route: 048
     Dates: end: 20090608
  2. OTHER MEDICATION [Concomitant]

REACTIONS (6)
  - ABDOMINAL PAIN LOWER [None]
  - AMENORRHOEA [None]
  - NAUSEA [None]
  - NEPHROLITHIASIS [None]
  - VAGINAL HAEMORRHAGE [None]
  - VOMITING [None]
